FAERS Safety Report 15813494 (Version 1)
Quarter: 2019Q1

REPORT INFORMATION
  Report Type: Spontaneous
  Country: US (occurrence: US)
  Receive Date: 20190111
  Receipt Date: 20190111
  Transmission Date: 20190417
  Serious: No
  Sender: FDA-Public Use
  Company Number: None

PATIENT
  Age: 75 Year
  Sex: Male

DRUGS (7)
  1. CLONAZEPAM. [Concomitant]
     Active Substance: CLONAZEPAM
     Dates: start: 20180910, end: 20181008
  2. TRAZODONE [Concomitant]
     Active Substance: TRAZODONE HYDROCHLORIDE
     Dates: start: 20180910, end: 20180918
  3. PIMAVANSERIN [Suspect]
     Active Substance: PIMAVANSERIN
     Indication: PARKINSON^S DISEASE PSYCHOSIS
     Route: 048
     Dates: start: 20180911, end: 20180921
  4. DIVALPROEX SODIUM. [Concomitant]
     Active Substance: DIVALPROEX SODIUM
     Dates: start: 20180910, end: 20181008
  5. QUETIAPINE. [Concomitant]
     Active Substance: QUETIAPINE
     Dates: start: 20180910, end: 20181008
  6. CARBIDOPA-LEVODOPA [Concomitant]
     Active Substance: CARBIDOPA\LEVODOPA
     Dates: start: 20180910, end: 20181008
  7. WARFARIN [Concomitant]
     Active Substance: WARFARIN
     Dates: start: 20180910, end: 20181008

REACTIONS (2)
  - Delirium [None]
  - Confusional state [None]

NARRATIVE: CASE EVENT DATE: 20180921
